FAERS Safety Report 8757869 (Version 1)
Quarter: 2012Q4

REPORT INFORMATION
  Report Type: 
  Country: GB (occurrence: GB)
  Receive Date: 20120828
  Receipt Date: 20120828
  Transmission Date: 20130627
  Serious: Yes (Life-Threatening, Hospitalization)
  Sender: FDA-Public Use
  Company Number: GB-SHIRE-ALL1-2012-04031

PATIENT
  Age: 20 Year
  Sex: Male

DRUGS (1)
  1. VPRIV [Suspect]
     Indication: GAUCHER^S DISEASE
     Dosage: 2400 IU, 1x/week
     Route: 041
     Dates: start: 201003

REACTIONS (1)
  - Pulmonary embolism [Unknown]
